FAERS Safety Report 21220889 (Version 3)
Quarter: 2022Q3

REPORT INFORMATION
  Report Type: Report from Study
  Country: US (occurrence: US)
  Receive Date: 20220817
  Receipt Date: 20220928
  Transmission Date: 20221027
  Serious: No
  Sender: FDA-Public Use
  Company Number: US-NOVARTISTESTPH-NVSC2022US185154

PATIENT
  Sex: Female

DRUGS (1)
  1. ENTRESTO [Suspect]
     Active Substance: SACUBITRIL\VALSARTAN
     Indication: Cardiac failure
     Dosage: 1 DOSAGE FORM, BID (49 MG)
     Route: 048

REACTIONS (4)
  - Spinal stenosis [Unknown]
  - Pain [Unknown]
  - Cough [Not Recovered/Not Resolved]
  - Musculoskeletal discomfort [Unknown]
